FAERS Safety Report 5206071-7 (Version None)
Quarter: 2007Q1

REPORT INFORMATION
  Report Type: 
  Country: None (occurrence: None)
  Receive Date: 20070111
  Receipt Date: 20070104
  Transmission Date: 20070707
  Serious: Yes (Death, Hospitalization)
  Sender: FDA-Public Use
  Company Number: HK-SANOFI-SYNTHELABO-F01200602006

PATIENT
  Sex: Male

DRUGS (7)
  1. ADALAT [Concomitant]
     Indication: HYPERTENSION
     Dosage: 40 MG
     Route: 048
     Dates: start: 20060515
  2. AMITRIPTYLINE HYDROCHLORIDE [Concomitant]
     Indication: HYPOAESTHESIA
     Dosage: 10 MG
     Route: 048
     Dates: start: 20041103
  3. ZOCOR [Concomitant]
     Indication: HYPERLIPIDAEMIA
     Dosage: 10 MG
     Route: 048
  4. ZESTRIL [Concomitant]
     Indication: HYPERTENSION
     Dosage: 10 MG
     Route: 048
     Dates: start: 20050214
  5. CLOPIDOGREL [Suspect]
     Indication: CEREBROVASCULAR ACCIDENT
     Route: 048
     Dates: start: 20051017
  6. CLOTRIMAZOLE [Concomitant]
     Indication: FUNGAL SKIN INFECTION
     Route: 065
     Dates: start: 20060907
  7. MICARDIS [Suspect]
     Indication: CEREBROVASCULAR ACCIDENT
     Route: 048
     Dates: start: 20051007

REACTIONS (2)
  - GASTRITIS EROSIVE [None]
  - OESOPHAGEAL ULCER [None]
